FAERS Safety Report 13195829 (Version 2)
Quarter: 2017Q1

REPORT INFORMATION
  Report Type: Report from Study
  Country: AR (occurrence: AR)
  Receive Date: 20170208
  Receipt Date: 20170221
  Transmission Date: 20170428
  Serious: Yes (Disabling, Other)
  Sender: FDA-Public Use
  Company Number: PHHY2017AR017981

PATIENT
  Sex: Male

DRUGS (6)
  1. CLONAZEPAM. [Concomitant]
     Active Substance: CLONAZEPAM
     Indication: PRODUCT USED FOR UNKNOWN INDICATION
     Dosage: 1MG OR 0.5MG
     Route: 065
  2. DIOVAN [Suspect]
     Active Substance: VALSARTAN
     Dosage: 1 DF, QD
     Route: 065
  3. TAMSULOSIN [Concomitant]
     Active Substance: TAMSULOSIN
     Indication: PRODUCT USED FOR UNKNOWN INDICATION
     Route: 065
  4. DILTIAZEM. [Concomitant]
     Active Substance: DILTIAZEM
     Indication: PRODUCT USED FOR UNKNOWN INDICATION
     Dosage: 180 MG, UNK
     Route: 065
  5. DIOVAN [Suspect]
     Active Substance: VALSARTAN
     Indication: HYPERTENSION
     Dosage: 160 MG, QD
     Route: 065
  6. DIOVAN [Suspect]
     Active Substance: VALSARTAN
     Indication: CARDIAC FAILURE
     Dosage: 2 DF, QD
     Route: 065

REACTIONS (13)
  - Sleep apnoea syndrome [Unknown]
  - Blood pressure fluctuation [Not Recovered/Not Resolved]
  - Cataract [Recovered/Resolved]
  - Pollakiuria [Not Recovered/Not Resolved]
  - Prostatic disorder [Unknown]
  - Somnolence [Unknown]
  - Blood pressure increased [Not Recovered/Not Resolved]
  - Memory impairment [Unknown]
  - Drug ineffective [Unknown]
  - Blindness [Unknown]
  - Feeling abnormal [Unknown]
  - Hypoacusis [Unknown]
  - Blood pressure diastolic decreased [Not Recovered/Not Resolved]
